FAERS Safety Report 5334364-1 (Version None)
Quarter: 2007Q2

REPORT INFORMATION
  Report Type: 
  Country: None (occurrence: None)
  Receive Date: 20070525
  Receipt Date: 20070516
  Transmission Date: 20071010
  Serious: Yes (Hospitalization)
  Sender: FDA-Public Use
  Company Number: PHBS2007JP08368

PATIENT
  Age: 60 Year
  Sex: Female

DRUGS (6)
  1. BROMOCRIPTINE MESYLATE [Suspect]
     Indication: PSYCHIATRIC SYMPTOM
     Route: 048
  2. SULPIRIDE [Suspect]
     Dosage: 300 MG, UNK
  3. PEROSPIRONE HYDROCHLORIDE [Suspect]
     Dosage: 8 MG, UNK
  4. STEROIDS NOS [Suspect]
  5. QUETIAPINE FUMARATE [Concomitant]
  6. MILNACIPRAN [Concomitant]

REACTIONS (7)
  - BLOOD CREATINE PHOSPHOKINASE INCREASED [None]
  - DEPRESSED MOOD [None]
  - HALLUCINATION [None]
  - LUPUS NEPHRITIS [None]
  - NEUROLEPTIC MALIGNANT SYNDROME [None]
  - PSYCHOTIC DISORDER [None]
  - STUPOR [None]
